FAERS Safety Report 23539969 (Version 1)
Quarter: 2024Q1

REPORT INFORMATION
  Report Type: Spontaneous
  Country: IN (occurrence: IN)
  Receive Date: 20240219
  Receipt Date: 20240219
  Transmission Date: 20240410
  Serious: Yes (Death)
  Sender: FDA-Public Use
  Company Number: IN-PFIZER INC-202101326726

PATIENT
  Age: 68 Year
  Sex: Female

DRUGS (4)
  1. PALBOCICLIB [Suspect]
     Active Substance: PALBOCICLIB
     Indication: Breast cancer
     Dosage: 1X/DAY, D1-21 X Q4 WEEKS
     Route: 048
     Dates: start: 20210718
  2. LETROZOLE [Concomitant]
     Active Substance: LETROZOLE
     Dosage: 2.5 MG
     Route: 048
     Dates: start: 202107
  3. ZOLEDRONIC ACID [Concomitant]
     Active Substance: ZOLEDRONIC ACID
     Dosage: 4 MG
  4. FASLODEX [Concomitant]
     Active Substance: FULVESTRANT
     Indication: Pain
     Dosage: 500 MG, AS NEEDED
     Route: 030

REACTIONS (10)
  - Death [Fatal]
  - Neoplasm progression [Unknown]
  - Back pain [Unknown]
  - Asthenia [Unknown]
  - Pyrexia [Unknown]
  - Pain [Unknown]
  - Haemoglobin decreased [Unknown]
  - White blood cell count decreased [Unknown]
  - Malaise [Unknown]
  - Emotional distress [Unknown]

NARRATIVE: CASE EVENT DATE: 20220316
